FAERS Safety Report 7336261-9 (Version None)
Quarter: 2011Q1

REPORT INFORMATION
  Report Type: 
  Country: None (occurrence: None)
  Receive Date: 20110307
  Receipt Date: 20110222
  Transmission Date: 20110831
  Serious: Yes (Death, Hospitalization, Other)
  Sender: FDA-Public Use
  Company Number: US-ACTELION-A-NJ2011-44240

PATIENT

DRUGS (4)
  1. SPIRONOLACTONE [Concomitant]
  2. VENTAVIS [Suspect]
     Indication: PULMONARY ARTERIAL HYPERTENSION
     Dosage: UNK
     Route: 055
     Dates: start: 20100409, end: 20110210
  3. TRACLEER [Suspect]
     Indication: PULMONARY ARTERIAL HYPERTENSION
     Dosage: UNK
     Route: 048
     Dates: start: 20091016, end: 20110210
  4. FUROSEMIDE [Concomitant]

REACTIONS (7)
  - TOOTH ABSCESS [None]
  - GENERALISED OEDEMA [None]
  - PARACENTESIS [None]
  - DEATH [None]
  - TOOTH EXTRACTION [None]
  - ASCITES [None]
  - HYPOTENSION [None]
